FAERS Safety Report 22117823 (Version 1)
Quarter: 2023Q1

REPORT INFORMATION
  Report Type: Other
  Country: FR (occurrence: FR)
  Receive Date: 20230321
  Receipt Date: 20230321
  Transmission Date: 20230418
  Serious: Yes (Other)
  Sender: FDA-Public Use
  Company Number: None

PATIENT

DRUGS (7)
  1. DULOXETINE [Interacting]
     Active Substance: DULOXETINE
     Indication: Mixed anxiety and depressive disorder
     Dosage: 30 MILLIGRAM, QD
     Route: 048
     Dates: start: 20230209, end: 20230228
  2. CEFAZOLIN [Interacting]
     Active Substance: CEFAZOLIN
     Indication: Intervertebral discitis
     Dosage: 8 GRAM EVERY 24 HRS
     Route: 042
     Dates: start: 20230204, end: 20230222
  3. LEVOFLOXACIN [Interacting]
     Active Substance: LEVOFLOXACIN
     Indication: Pulmonary embolism
     Dosage: 20000 INTERNATIONAL UNIT, QD
     Route: 058
     Dates: start: 20230213, end: 20230222
  4. KARDEGIC [Interacting]
     Active Substance: ASPIRIN DL-LYSINE
     Indication: Cardiovascular event prophylaxis
     Dosage: 1 DOSAGE FORM, QD
     Route: 048
     Dates: start: 20230125
  5. EZETIMIBE [Concomitant]
     Active Substance: EZETIMIBE
     Indication: Product used for unknown indication
     Dosage: 10 MILLIGRAM, QD
     Route: 048
  6. LANSOPRAZOLE [Concomitant]
     Active Substance: LANSOPRAZOLE
     Indication: Product used for unknown indication
     Dosage: 15 MILLIGRAM, QD
     Route: 048
  7. GABAPENTIN [Concomitant]
     Active Substance: GABAPENTIN
     Indication: Product used for unknown indication
     Dosage: 300 MILLIGRAM, QD
     Route: 048

REACTIONS (2)
  - Drug interaction [Recovered/Resolved]
  - Pelvic haematoma [Recovered/Resolved]

NARRATIVE: CASE EVENT DATE: 20230221
